FAERS Safety Report 20716337 (Version 1)
Quarter: 2022Q2

REPORT INFORMATION
  Report Type: Spontaneous
  Country: US (occurrence: US)
  Receive Date: 20220416
  Receipt Date: 20220416
  Transmission Date: 20220720
  Serious: Yes (Other)
  Sender: FDA-Public Use
  Company Number: US-ALLERGAN-2140112US

PATIENT
  Age: 20 Year
  Sex: Female
  Weight: 71.655 kg

DRUGS (2)
  1. LILETTA [Suspect]
     Active Substance: LEVONORGESTREL
     Indication: Contraception
     Dosage: 52 MG, SINGLE
     Route: 015
     Dates: start: 20211122, end: 20211122
  2. VITAMINS [Concomitant]
     Active Substance: VITAMINS
     Indication: Breast feeding
     Dosage: UNK

REACTIONS (1)
  - Uterine perforation [Unknown]

NARRATIVE: CASE EVENT DATE: 20211122
